FAERS Safety Report 5785555-7 (Version None)
Quarter: 2008Q2

REPORT INFORMATION
  Report Type: 
  Country: None (occurrence: None)
  Receive Date: 20080605
  Receipt Date: 20080220
  Transmission Date: 20081010
  Serious: No
  Sender: FDA-Public Use
  Company Number: A0710685A

PATIENT
  Age: 48 Year
  Sex: Female

DRUGS (3)
  1. ALLI [Suspect]
     Indication: DRUG USE FOR UNKNOWN INDICATION
  2. DAILY VITAMIN [Concomitant]
  3. CELEBREX [Concomitant]

REACTIONS (3)
  - BLADDER DISORDER [None]
  - CYSTITIS [None]
  - CYSTITIS NONINFECTIVE [None]
